FAERS Safety Report 7150766-5 (Version None)
Quarter: 2010Q4

REPORT INFORMATION
  Report Type: 
  Country: None (occurrence: None)
  Receive Date: 20101210
  Receipt Date: 20101129
  Transmission Date: 20110411
  Serious: Yes (Other)
  Sender: FDA-Public Use
  Company Number: GB-SANOFI-AVENTIS-2010SA072549

PATIENT
  Age: 82 Year
  Sex: Female
  Weight: 62 kg

DRUGS (6)
  1. DRONEDARONE [Suspect]
     Indication: HEART RATE ABNORMAL
     Route: 048
     Dates: start: 20101007, end: 20101107
  2. DRONEDARONE [Suspect]
     Route: 048
     Dates: start: 20101108, end: 20101110
  3. DIOVANE [Concomitant]
     Indication: HYPERTENSION
     Route: 048
  4. MOTILIUM [Concomitant]
     Route: 048
  5. OMEPRAZOLE [Concomitant]
     Route: 048
  6. PULMICORT [Concomitant]
     Indication: ASTHMA
     Route: 055

REACTIONS (10)
  - ACNE [None]
  - BURNING SENSATION [None]
  - ERYTHEMA [None]
  - FACE OEDEMA [None]
  - HYPERSENSITIVITY [None]
  - OEDEMA [None]
  - OEDEMA PERIPHERAL [None]
  - PRURITUS [None]
  - RASH [None]
  - UNDERDOSE [None]
